FAERS Safety Report 14856923 (Version 1)
Quarter: 2018Q2

REPORT INFORMATION
  Report Type: Spontaneous
  Country: US (occurrence: US)
  Receive Date: 20180507
  Receipt Date: 20180507
  Transmission Date: 20180711
  Serious: No
  Sender: FDA-Public Use
  Company Number: US-ROCHE-2066339

PATIENT
  Sex: Male

DRUGS (14)
  1. CELECOXIB. [Concomitant]
     Active Substance: CELECOXIB
     Route: 065
  2. PREDNISONE. [Concomitant]
     Active Substance: PREDNISONE
     Route: 065
  3. OMEPRAZOLE. [Concomitant]
     Active Substance: OMEPRAZOLE
  4. ESBRIET [Suspect]
     Active Substance: PIRFENIDONE
     Indication: RHEUMATOID ARTHRITIS
     Route: 065
  5. CILOSTAZOL. [Concomitant]
     Active Substance: CILOSTAZOL
  6. ROPINIROLE. [Concomitant]
     Active Substance: ROPINIROLE
  7. CEFDINIR. [Concomitant]
     Active Substance: CEFDINIR
  8. CEFDINIR. [Concomitant]
     Active Substance: CEFDINIR
  9. TRAMADOL HCL [Concomitant]
     Active Substance: TRAMADOL HYDROCHLORIDE
     Route: 065
  10. OXYGEN. [Concomitant]
     Active Substance: OXYGEN
  11. ADVAIR HFA [Concomitant]
     Active Substance: FLUTICASONE PROPIONATE\SALMETEROL XINAFOATE
  12. DONEPEZIL HCL [Concomitant]
     Active Substance: DONEPEZIL HYDROCHLORIDE
  13. VENTOLIN HFA [Concomitant]
     Active Substance: ALBUTEROL SULFATE
  14. METHOTREXATE. [Concomitant]
     Active Substance: METHOTREXATE
     Route: 065

REACTIONS (4)
  - Speech disorder [Not Recovered/Not Resolved]
  - Intentional product use issue [Unknown]
  - Off label use [Unknown]
  - Dizziness [Not Recovered/Not Resolved]
